FAERS Safety Report 15432606 (Version 1)
Quarter: 2018Q3

REPORT INFORMATION
  Report Type: Spontaneous
  Country: US (occurrence: US)
  Receive Date: 20180927
  Receipt Date: 20180927
  Transmission Date: 20181010
  Serious: No
  Sender: FDA-Public Use
  Company Number: US-B.I. PHARMACEUTICALS,INC./RIDGEFIELD-2018-BI-046864

PATIENT
  Age: 70 Year
  Sex: Female

DRUGS (3)
  1. ADVAIR HFA [Concomitant]
     Active Substance: FLUTICASONE PROPIONATE\SALMETEROL XINAFOATE
     Indication: CHRONIC OBSTRUCTIVE PULMONARY DISEASE
     Dosage: 1 PUFF TWICE DAILY IN MORNING AND EVENING;  FORM STRENGTH: 250MCG/50MCG; FORMULATION: POWDER
     Route: 055
     Dates: start: 2007
  2. SPIRIVA RESPIMAT [Suspect]
     Active Substance: TIOTROPIUM BROMIDE
     Indication: CHRONIC OBSTRUCTIVE PULMONARY DISEASE
     Dosage: 2 PUFFS DAILY;  FORM STRENGTH: 2.5 MCG; ? ACTION(S) TAKEN WITH PRODUCT: DOSE NOT CHANGED
     Route: 048
     Dates: start: 201804
  3. ALBUTEROL. [Concomitant]
     Active Substance: ALBUTEROL
     Indication: CHRONIC OBSTRUCTIVE PULMONARY DISEASE
     Dosage: PRN;  FORMULATION: INHALATION AEROSOL;
     Route: 055
     Dates: start: 2007

REACTIONS (5)
  - Pneumonia [Recovered/Resolved]
  - Arthralgia [Not Recovered/Not Resolved]
  - Pyrexia [Recovered/Resolved]
  - Musculoskeletal chest pain [Not Recovered/Not Resolved]
  - Chest pain [Not Recovered/Not Resolved]

NARRATIVE: CASE EVENT DATE: 20180525
